FAERS Safety Report 9520025 (Version 3)
Quarter: 2013Q4

REPORT INFORMATION
  Report Type: Spontaneous
  Country: DK (occurrence: GB)
  Receive Date: 20130912
  Receipt Date: 20131024
  Transmission Date: 20140711
  Serious: Yes (Life-Threatening)
  Sender: FDA-Public Use
  Company Number: GB-FRI-1000048745

PATIENT
  Age: 32 Year
  Sex: Female

DRUGS (2)
  1. DINOPROSTONE [Suspect]
     Indication: INDUCED LABOUR
     Route: 067
     Dates: start: 20130306, end: 20130307
  2. LEVOTHYROXINE [Concomitant]
     Indication: HYPOTHYROIDISM
     Dosage: 125 MCG
     Route: 048

REACTIONS (5)
  - Multi-organ failure [Recovering/Resolving]
  - Anaphylactoid syndrome of pregnancy [Recovered/Resolved]
  - Disseminated intravascular coagulation [Recovered/Resolved with Sequelae]
  - Postpartum haemorrhage [Recovered/Resolved]
  - Uterine hypertonus [Recovered/Resolved]
